FAERS Safety Report 6354819-0 (Version None)
Quarter: 2009Q3

REPORT INFORMATION
  Report Type: 
  Country: None (occurrence: None)
  Receive Date: 20090914
  Receipt Date: 20090901
  Transmission Date: 20100115
  Serious: Yes (Other)
  Sender: FDA-Public Use
  Company Number: US-JNJFOC-20090902834

PATIENT
  Age: 24 Year
  Sex: Female

DRUGS (5)
  1. REMICADE [Suspect]
     Dosage: RECEIVED 3 INFUSIONS AT WEEKS 0, 2, AND 6
     Route: 042
  2. REMICADE [Suspect]
     Dosage: RECEIVED 3 INFUSIONS AT WEEKS 0, 2, AND 6
     Route: 042
  3. REMICADE [Suspect]
     Indication: CROHN'S DISEASE
     Dosage: RECEIVED 3 INFUSIONS AT WEEKS 0, 2, AND 6
     Route: 042
  4. ACETAMINOPHEN [Concomitant]
     Indication: PREMEDICATION
  5. CORTICOSTEROIDS [Concomitant]
     Indication: PREMEDICATION

REACTIONS (2)
  - DRUG EXPOSURE DURING PREGNANCY [None]
  - PREMATURE LABOUR [None]
